FAERS Safety Report 7604084-9 (Version None)
Quarter: 2011Q3

REPORT INFORMATION
  Report Type: 
  Country: None (occurrence: None)
  Receive Date: 20110712
  Receipt Date: 20110704
  Transmission Date: 20111222
  Serious: Yes (Other)
  Sender: FDA-Public Use
  Company Number: AU-PFIZER INC-2011149038

PATIENT

DRUGS (1)
  1. XALATAN [Suspect]
     Indication: GLAUCOMA
     Dosage: ONCE DAILY
     Route: 061

REACTIONS (3)
  - CORNEAL EROSION [None]
  - DISCOMFORT [None]
  - BLINDNESS TRANSIENT [None]
